FAERS Safety Report 10194073 (Version 1)
Quarter: 2014Q2

REPORT INFORMATION
  Report Type: Spontaneous
  Country: US (occurrence: US)
  Receive Date: 20140524
  Receipt Date: 20140524
  Transmission Date: 20141212
  Serious: No
  Sender: FDA-Public Use
  Company Number: US-SANOFI-AVENTIS-2013SA052141

PATIENT
  Age: 74 Year
  Sex: Male

DRUGS (4)
  1. LANTUS SOLOSTAR [Suspect]
     Indication: TYPE 2 DIABETES MELLITUS
     Dosage: AT MORNING DOSE:15 UNIT(S)
     Route: 051
  2. SOLOSTAR [Suspect]
     Indication: TYPE 2 DIABETES MELLITUS
  3. GLIPIZIDE [Concomitant]
  4. METFORMIN [Concomitant]

REACTIONS (4)
  - Fatigue [Unknown]
  - Feeling abnormal [Unknown]
  - Blood glucose decreased [Unknown]
  - Blood glucose increased [Unknown]
